FAERS Safety Report 17549595 (Version 1)
Quarter: 2020Q1

REPORT INFORMATION
  Report Type: Spontaneous
  Country: US (occurrence: US)
  Receive Date: 20200316
  Receipt Date: 20200316
  Transmission Date: 20200409
  Serious: Yes (Other)
  Sender: FDA-Public Use
  Company Number: None

PATIENT
  Age: 64 Year
  Sex: Female
  Weight: 43.2 kg

DRUGS (6)
  1. PROGESTERONE. [Concomitant]
     Active Substance: PROGESTERONE
  2. METHOCARBAMOL 500 MG [Suspect]
     Active Substance: METHOCARBAMOL
     Indication: MUSCLE SPASMS
     Dosage: ?          QUANTITY:60 TABLET(S);?
     Route: 048
  3. HYDROCODONE\ACETAMINOPHEN [Concomitant]
     Active Substance: ACETAMINOPHEN\HYDROCODONE
  4. LIOTHYRONINE [Concomitant]
     Active Substance: LIOTHYRONINE
  5. IBUPROFEN. [Concomitant]
     Active Substance: IBUPROFEN
  6. LEVOTHYROXINE. [Concomitant]
     Active Substance: LEVOTHYROXINE

REACTIONS (8)
  - Nausea [None]
  - Dizziness [None]
  - Feeling abnormal [None]
  - Product substitution issue [None]
  - Therapeutic product effect variable [None]
  - Overdose [None]
  - Hyperhidrosis [None]
  - Drug ineffective [None]

NARRATIVE: CASE EVENT DATE: 20200212
